FAERS Safety Report 9881529 (Version 3)
Quarter: 2014Q2

REPORT INFORMATION
  Report Type: Spontaneous
  Country: US (occurrence: US)
  Receive Date: 20140207
  Receipt Date: 20140512
  Transmission Date: 20141212
  Serious: Yes (Death, Other)
  Sender: FDA-Public Use
  Company Number: US-CELGENEUS-163-21880-14020081

PATIENT
  Age: 80 Year
  Sex: Female
  Weight: 72.64 kg

DRUGS (1)
  1. REVLIMID [Suspect]
     Indication: PLASMA CELL MYELOMA
     Dosage: 10 MILLIGRAM
     Route: 048
     Dates: start: 201311

REACTIONS (4)
  - Pleural effusion [Fatal]
  - Renal failure acute [Fatal]
  - Cardiac failure congestive [Unknown]
  - Atrial fibrillation [Unknown]
